FAERS Safety Report 5618296-7 (Version None)
Quarter: 2008Q1

REPORT INFORMATION
  Report Type: 
  Country: None (occurrence: None)
  Receive Date: 20080207
  Receipt Date: 20080124
  Transmission Date: 20080703
  Serious: Yes (Hospitalization)
  Sender: FDA-Public Use
  Company Number: NL-AMGEN-US261285

PATIENT
  Sex: Female

DRUGS (6)
  1. ENBREL [Suspect]
     Indication: JUVENILE ARTHRITIS
     Route: 065
     Dates: start: 20071116
  2. ZALDIAR [Concomitant]
     Route: 065
  3. METHOTREXATE [Concomitant]
     Route: 058
  4. CODEINE PHOSPHATE AND ACETAMINOPHEN [Concomitant]
     Dosage: 500/20 MG: 1 TABLET 2 TIMES PER DAY
     Route: 065
  5. OMEPRAZOLE [Concomitant]
     Route: 065
  6. FOLIC ACID [Concomitant]
     Route: 065

REACTIONS (5)
  - BURNING SENSATION [None]
  - PAIN [None]
  - PARAESTHESIA [None]
  - RESPIRATORY TRACT IRRITATION [None]
  - SWELLING FACE [None]
